FAERS Safety Report 7233336-X (Version None)
Quarter: 2011Q1

REPORT INFORMATION
  Report Type: 
  Country: None (occurrence: None)
  Receive Date: 20110119
  Receipt Date: 20110114
  Transmission Date: 20110831
  Serious: Yes (Death)
  Sender: FDA-Public Use
  Company Number: FR-ROCHE-746056

PATIENT
  Sex: Female
  Weight: 68 kg

DRUGS (1)
  1. HERCEPTIN [Suspect]
     Indication: BREAST CANCER
     Route: 065
     Dates: start: 20100601, end: 20101101

REACTIONS (3)
  - CONFUSIONAL STATE [None]
  - PARANEOPLASTIC SYNDROME [None]
  - VERTIGO [None]
